FAERS Safety Report 24744046 (Version 6)
Quarter: 2025Q2

REPORT INFORMATION
  Report Type: Spontaneous
  Country: US (occurrence: US)
  Receive Date: 20241217
  Receipt Date: 20250402
  Transmission Date: 20250716
  Serious: Yes (Other)
  Sender: PFIZER
  Company Number: US-PFIZER INC-202400322833

PATIENT
  Age: 13 Year
  Sex: Female

DRUGS (1)
  1. GENOTROPIN [Suspect]
     Active Substance: SOMATROPIN
     Indication: Prader-Willi syndrome
     Dosage: 1.0, ONCE A DAY, AT NIGHT

REACTIONS (6)
  - Pneumonia [Unknown]
  - Wrong technique in device usage process [Unknown]
  - Device use issue [Unknown]
  - Device leakage [Unknown]
  - Device information output issue [Unknown]
  - Drug dose omission by device [Unknown]
